FAERS Safety Report 18626185 (Version 1)
Quarter: 2020Q4

REPORT INFORMATION
  Report Type: Spontaneous
  Country: GB (occurrence: GB)
  Receive Date: 20201216
  Receipt Date: 20201216
  Transmission Date: 20210114
  Serious: Yes (Other)
  Sender: FDA-Public Use
  Company Number: GB-JNJFOC-20201225776

PATIENT
  Age: 82 Year
  Sex: Female
  Weight: 45 kg

DRUGS (18)
  1. GLIMEPIRIDE. [Concomitant]
     Active Substance: GLIMEPIRIDE
     Dates: start: 20201119
  2. PIPERACILLIN. [Concomitant]
     Active Substance: PIPERACILLIN SODIUM
     Dates: start: 20201111, end: 20201118
  3. EZETIMIBE. [Concomitant]
     Active Substance: EZETIMIBE
     Dates: start: 20201110
  4. CANAGLIFLOZIN [Suspect]
     Active Substance: CANAGLIFLOZIN
     Indication: PRODUCT USED FOR UNKNOWN INDICATION
     Dosage: 200 MILLILITRE(S) UNCHECKED UNITS
     Route: 048
     Dates: start: 20201111
  5. PHOSPHATE SANDOZ EFFERVESCENT [Concomitant]
     Dates: start: 20201118
  6. NOVORAPID [Concomitant]
     Active Substance: INSULIN ASPART
     Dosage: UNIT
     Dates: start: 20201118, end: 20201118
  7. THIAMINE. [Concomitant]
     Active Substance: THIAMINE
     Dates: start: 20201119
  8. SPIRONOLACTONE. [Concomitant]
     Active Substance: SPIRONOLACTONE
     Dates: start: 20201111
  9. TERLIPRESSIN [Concomitant]
     Active Substance: TERLIPRESSIN
     Dates: start: 20201112, end: 20201116
  10. SUDOCREM [Concomitant]
     Active Substance: LANOLIN\ZINC OXIDE
     Dosage: 1 APPLICATION
     Dates: start: 20201116, end: 20201116
  11. METFORMIN [Concomitant]
     Active Substance: METFORMIN HYDROCHLORIDE
     Dates: start: 20201114
  12. LACTULOSE. [Concomitant]
     Active Substance: LACTULOSE
     Dates: start: 20201119
  13. CARVEDILOL. [Concomitant]
     Active Substance: CARVEDILOL
     Dates: start: 20201118
  14. SODIUM CHLORIDE. [Concomitant]
     Active Substance: SODIUM CHLORIDE
     Dates: start: 20201115
  15. FERRIC CARBOXYMALTOSE [Concomitant]
     Active Substance: FERRIC CARBOXYMALTOSE
     Dates: start: 20201118
  16. ESOMEPRAZOLE. [Concomitant]
     Active Substance: ESOMEPRAZOLE MAGNESIUM
     Dates: start: 20201111, end: 20201119
  17. FORCEVAL [AMINO ACIDS NOS;ELECTROLYTES NOS;FERROUS FUMARATE;NICOTINAMI [Concomitant]
     Dates: start: 20201119
  18. MICONAZOLE. [Concomitant]
     Active Substance: MICONAZOLE
     Dosage: 1 APPLICATION
     Dates: start: 20201118

REACTIONS (1)
  - Ketosis [Recovered/Resolved]

NARRATIVE: CASE EVENT DATE: 20201119
